FAERS Safety Report 20221476 (Version 1)
Quarter: 2021Q4

REPORT INFORMATION
  Report Type: Spontaneous
  Country: US (occurrence: US)
  Receive Date: 20211223
  Receipt Date: 20211223
  Transmission Date: 20220303
  Serious: Yes (Hospitalization)
  Sender: FDA-Public Use
  Company Number: US-ENDO PHARMACEUTICALS INC-2021-013594

PATIENT
  Age: 42 Year
  Sex: Female
  Weight: 69.841 kg

DRUGS (11)
  1. KETALAR [Suspect]
     Active Substance: KETAMINE HYDROCHLORIDE
     Indication: Complex regional pain syndrome
     Dosage: DAY 1, STARTED AND TITRATED FROM 10 TO 20 MG/HOUR OVER A PERIOD OF 5 DAYS
     Route: 042
  2. DULOXETINE HYDROCHLORIDE [Suspect]
     Active Substance: DULOXETINE HYDROCHLORIDE
     Indication: Depression
     Dosage: 20 MG, DAILY (PRIOR TO KETAMINE)
     Route: 065
  3. DULOXETINE HYDROCHLORIDE [Suspect]
     Active Substance: DULOXETINE HYDROCHLORIDE
     Indication: Insomnia
     Dosage: 20 MG, UNKNOWN (ON DAY 3, RE-STARTED)
     Route: 065
  4. DULOXETINE HYDROCHLORIDE [Suspect]
     Active Substance: DULOXETINE HYDROCHLORIDE
     Dosage: 60 MG, UNKNOWN (INCREASED ON DAY 8)
     Route: 065
  5. UNSPECIFIED INGREDIENT [Concomitant]
     Active Substance: UNSPECIFIED INGREDIENT
     Indication: Complex regional pain syndrome
     Dosage: UNK UNKNOWN, UNKNOWN (HIGH DOSE)
     Route: 065
  6. UNSPECIFIED INGREDIENT [Concomitant]
     Active Substance: UNSPECIFIED INGREDIENT
     Dosage: UNK UNKNOWN, UNKNOWN
     Route: 065
  7. MIRTAZAPINE [Concomitant]
     Active Substance: MIRTAZAPINE
     Indication: Depression
     Dosage: 45 MG, QHS (PRIOR TO KETAMINE)
     Route: 065
  8. MIRTAZAPINE [Concomitant]
     Active Substance: MIRTAZAPINE
     Indication: Insomnia
     Dosage: 45 MG, UNKNOWN (ON DAY 3, RE-STARTED)
     Route: 065
  9. QUETIAPINE [Concomitant]
     Active Substance: QUETIAPINE
     Indication: Depression
     Dosage: 100 UNKNOWN, QHS (PRIOR TO KETAMINE)
     Route: 065
  10. QUETIAPINE [Concomitant]
     Active Substance: QUETIAPINE
     Indication: Insomnia
     Dosage: 100 MG, QHS (RE-STARTED ON DAY 8)
     Route: 065
  11. QUETIAPINE [Concomitant]
     Active Substance: QUETIAPINE
     Dosage: 200 MG, UNK (DAY 18)
     Route: 065

REACTIONS (2)
  - Mania [Recovering/Resolving]
  - Off label use [Recovered/Resolved]
